FAERS Safety Report 7693596-8 (Version None)
Quarter: 2011Q3

REPORT INFORMATION
  Report Type: 
  Country: None (occurrence: None)
  Receive Date: 20110819
  Receipt Date: 20110809
  Transmission Date: 20111222
  Serious: Yes (Other)
  Sender: FDA-Public Use
  Company Number: US-AMGEN-USASP2011040658

PATIENT
  Age: 74 Year
  Sex: Female

DRUGS (1)
  1. ENBREL [Suspect]
     Indication: RHEUMATOID ARTHRITIS
     Dosage: 50 MG, QWK
     Dates: start: 20071001, end: 20110701

REACTIONS (5)
  - INCISION SITE PAIN [None]
  - SQUAMOUS CELL CARCINOMA [None]
  - INCISION SITE ERYTHEMA [None]
  - BASAL CELL CARCINOMA [None]
  - INCISION SITE COMPLICATION [None]
